FAERS Safety Report 9137273 (Version 1)
Quarter: 2013Q1

REPORT INFORMATION
  Report Type: Spontaneous
  Country: US (occurrence: US)
  Receive Date: 20130219
  Receipt Date: 20130219
  Transmission Date: 20140127
  Serious: No
  Sender: FDA-Public Use
  Company Number: US-BRISTOL-MYERS SQUIBB COMPANY-16492753

PATIENT
  Age: 44 Year
  Sex: Female
  Weight: 58 kg

DRUGS (2)
  1. ORENCIA [Suspect]
     Indication: RHEUMATOID ARTHRITIS
     Dosage: SECOND INF 16/17FEB12?RECENT INF 21MAR12?LAST INF:20JUN2012
     Route: 042
     Dates: start: 20120202
  2. METHOTREXATE [Concomitant]

REACTIONS (2)
  - Aphthous stomatitis [Unknown]
  - Drug ineffective [Unknown]
